FAERS Safety Report 23063670 (Version 1)
Quarter: 2023Q4

REPORT INFORMATION
  Report Type: Other
  Country: None (occurrence: US)
  Receive Date: 20231013
  Receipt Date: 20231013
  Transmission Date: 20240109
  Serious: Yes (Life-Threatening, Hospitalization, Other)
  Sender: FDA-Public Use
  Company Number: US-AptaPharma Inc.-2147072

PATIENT
  Age: 19 Year
  Sex: Female

DRUGS (2)
  1. IBUPROFEN ORAL [Suspect]
     Active Substance: IBUPROFEN
     Indication: Product used for unknown indication
     Route: 048
  2. OLANZAPINE [Concomitant]
     Active Substance: OLANZAPINE
     Route: 065

REACTIONS (3)
  - Metabolic acidosis [Recovered/Resolved]
  - Shock [Recovered/Resolved]
  - Overdose [Unknown]
